FAERS Safety Report 20653276 (Version 1)
Quarter: 2022Q1

REPORT INFORMATION
  Report Type: Spontaneous
  Country: CA (occurrence: CA)
  Receive Date: 20220330
  Receipt Date: 20220330
  Transmission Date: 20220424
  Serious: Yes (Other)
  Sender: FDA-Public Use
  Company Number: CA-BAYER-2022A045770

PATIENT
  Age: 70 Year
  Sex: Female

DRUGS (2)
  1. ALEVE [Suspect]
     Active Substance: NAPROXEN SODIUM
     Route: 048
  2. MEFENAMIC ACID [Concomitant]
     Active Substance: MEFENAMIC ACID

REACTIONS (1)
  - Duodenal ulcer haemorrhage [Unknown]
